FAERS Safety Report 25817668 (Version 1)
Quarter: 2025Q3

REPORT INFORMATION
  Report Type: Spontaneous
  Country: US (occurrence: None)
  Receive Date: 20250917
  Receipt Date: 20250917
  Transmission Date: 20251020
  Serious: Yes (unspecified)
  Sender: FDA-CTU
  Company Number: None

PATIENT

DRUGS (1)
  1. PHENTERMINE [Suspect]
     Active Substance: PHENTERMINE

REACTIONS (4)
  - Abdominal pain upper [None]
  - Palpitations [None]
  - Headache [None]
  - Flushing [None]

NARRATIVE: CASE EVENT DATE: 20250917
